FAERS Safety Report 7315281-4 (Version None)
Quarter: 2011Q1

REPORT INFORMATION
  Report Type: 
  Country: None (occurrence: None)
  Receive Date: 20110225
  Receipt Date: 20110224
  Transmission Date: 20110831
  Serious: Yes (Hospitalization)
  Sender: FDA-Public Use
  Company Number: US-ROCHE-761366

PATIENT
  Age: 47 Year
  Sex: Female

DRUGS (5)
  1. FLUOROURACIL [Concomitant]
  2. EPIRUBICIN [Concomitant]
  3. CYCLOPHOSPHAMIDE [Concomitant]
  4. DOCETAXEL [Suspect]
     Route: 065
  5. TRASTUZUMAB [Suspect]
     Route: 065

REACTIONS (7)
  - NORMOCHROMIC NORMOCYTIC ANAEMIA [None]
  - HYPERREFLEXIA [None]
  - ATAXIA [None]
  - HYPERTONIA [None]
  - HYPERBILIRUBINAEMIA [None]
  - THROMBOTIC MICROANGIOPATHY [None]
  - BLOOD CREATININE INCREASED [None]
